FAERS Safety Report 17769362 (Version 1)
Quarter: 2020Q2

REPORT INFORMATION
  Report Type: Spontaneous
  Country: US (occurrence: US)
  Receive Date: 20200511
  Receipt Date: 20200511
  Transmission Date: 20200714
  Serious: Yes (Hospitalization)
  Sender: FDA-Public Use
  Company Number: None

PATIENT
  Sex: Male

DRUGS (1)
  1. CAPECITABINE 500MG TAB [Suspect]
     Active Substance: CAPECITABINE
     Indication: SMALL INTESTINE CARCINOMA
     Dosage: 4 TABS (2000MG) BID PO ON 14 DAYS OFF 7 DAYS
     Route: 048
     Dates: start: 20200305

REACTIONS (2)
  - Clavicle fracture [None]
  - Therapy interrupted [None]
